FAERS Safety Report 4378568-3 (Version None)
Quarter: 2004Q2

REPORT INFORMATION
  Report Type: 
  Country: None (occurrence: None)
  Receive Date: 20040609
  Receipt Date: 20040528
  Transmission Date: 20050107
  Serious: Yes (Hospitalization)
  Sender: FDA-Public Use
  Company Number: 206405

PATIENT
  Age: 83 Year
  Sex: Male
  Weight: 73.2 kg

DRUGS (6)
  1. BEVACIZUMAB (BEVACIZUMAB) PWDR + SOLVENT, INFUSION SOLN, 100MG [Suspect]
     Indication: COLORECTAL CANCER METASTATIC
     Dosage: 5 MG/KG, Q2W, INTRAVENOUS
     Route: 042
     Dates: start: 20040216
  2. OXALIPLATIN (OXALIPLATIN) [Concomitant]
  3. LEUCOVORIN CALCIUM [Concomitant]
  4. FLUOROURACIL [Concomitant]
  5. ASPIRIN [Concomitant]
  6. MAXIDE (TRIAMTERENE, HYDROCHLOROTHIAZIDE) [Concomitant]

REACTIONS (17)
  - ACTIVATED PARTIAL THROMBOPLASTIN TIME PROLONGED [None]
  - ASTHENIA [None]
  - ATELECTASIS [None]
  - ATRIAL FIBRILLATION [None]
  - DIFFICULTY IN WALKING [None]
  - ESCHERICHIA BACTERAEMIA [None]
  - ESCHERICHIA URINARY TRACT INFECTION [None]
  - FAECALOMA [None]
  - FIBRIN D DIMER INCREASED [None]
  - HOMANS' SIGN [None]
  - INTERNATIONAL NORMALISED RATIO INCREASED [None]
  - LUNG INFILTRATION [None]
  - PAIN IN EXTREMITY [None]
  - PLEURITIC PAIN [None]
  - PROTHROMBIN TIME PROLONGED [None]
  - PULMONARY EMBOLISM [None]
  - RESPIRATORY DISTRESS [None]
